FAERS Safety Report 21528623 (Version 1)
Quarter: 2022Q4

REPORT INFORMATION
  Report Type: Report from Study
  Country: US (occurrence: US)
  Receive Date: 20221031
  Receipt Date: 20221031
  Transmission Date: 20230113
  Serious: No
  Sender: FDA-Public Use
  Company Number: US-ABBVIE-4173193

PATIENT
  Sex: Male

DRUGS (2)
  1. SKYRIZI [Suspect]
     Active Substance: RISANKIZUMAB-RZAA
     Indication: Psoriasis
     Dosage: FORM STRENGTH: 150 MG?DOSING SKYRIZI 150MG WEEK 0, WEEK 4 AND EVERY 12
     Route: 058
     Dates: start: 202206, end: 202206
  2. SKYRIZI [Suspect]
     Active Substance: RISANKIZUMAB-RZAA
     Dosage: FORM STRENGTH: 150 MG?DOSING SKYRIZI 150MG WEEK 0, WEEK 4 AND EVERY 12
     Route: 058
     Dates: start: 202204, end: 202204

REACTIONS (1)
  - Therapeutic product effect incomplete [Unknown]
